FAERS Safety Report 4361861-8 (Version None)
Quarter: 2004Q2

REPORT INFORMATION
  Report Type: 
  Country: None (occurrence: None)
  Receive Date: 20040521
  Receipt Date: 20040325
  Transmission Date: 20050107
  Serious: No
  Sender: FDA-Public Use
  Company Number: US-GLAXOSMITHKLINE-A0504577A

PATIENT
  Age: 49 Year
  Sex: Male

DRUGS (6)
  1. WELLBUTRIN XL [Suspect]
     Indication: DEPRESSION
     Dosage: 150MG PER DAY
     Route: 048
     Dates: start: 20040325, end: 20040325
  2. HYTRIN [Concomitant]
  3. TRIAVIL [Concomitant]
  4. MEVACOR [Concomitant]
  5. VALIUM [Concomitant]
  6. CIPRO [Concomitant]

REACTIONS (3)
  - ANGER [None]
  - DYSPNOEA [None]
  - NERVOUSNESS [None]
